FAERS Safety Report 17598680 (Version 1)
Quarter: 2020Q1

REPORT INFORMATION
  Report Type: Spontaneous
  Country: US (occurrence: US)
  Receive Date: 20200329
  Receipt Date: 20200329
  Transmission Date: 20200409
  Serious: Yes (Life-Threatening)
  Sender: FDA-Public Use
  Company Number: None

PATIENT
  Age: 39 Year
  Sex: Female
  Weight: 67.5 kg

DRUGS (1)
  1. PLAN B ONE-STEP [Suspect]
     Active Substance: LEVONORGESTREL
     Indication: ORAL CONTRACEPTION
     Dosage: ?          OTHER FREQUENCY:JUST ONE PILL;?
     Route: 048

REACTIONS (4)
  - Dyspnoea [None]
  - Abdominal pain [None]
  - Headache [None]
  - Pharyngeal inflammation [None]

NARRATIVE: CASE EVENT DATE: 20200323
